FAERS Safety Report 8176438-6 (Version None)
Quarter: 2012Q1

REPORT INFORMATION
  Report Type: 
  Country: None (occurrence: None)
  Receive Date: 20120301
  Receipt Date: 20120220
  Transmission Date: 20120608
  Serious: Yes (Hospitalization, Other)
  Sender: FDA-Public Use
  Company Number: FR-ABBOTT-12P-056-0906934-00

PATIENT
  Sex: Male

DRUGS (7)
  1. ABACAVIR SULFATE/LAMIVUDINE [Suspect]
     Indication: HIV INFECTION
     Route: 048
     Dates: start: 20071011
  2. PREZISTA [Suspect]
     Indication: HIV INFECTION
     Dosage: 2 DOSAGE FORMS DAILY
     Dates: start: 20100224
  3. CREON [Concomitant]
     Indication: PRODUCT USED FOR UNKNOWN INDICATION
     Dates: start: 20110114
  4. NORVIR [Suspect]
     Indication: HIV INFECTION
     Route: 048
     Dates: start: 20101014
  5. NEXIUM [Concomitant]
     Indication: PRODUCT USED FOR UNKNOWN INDICATION
     Dates: start: 20110114
  6. URSOLVAN [Concomitant]
     Indication: PRODUCT USED FOR UNKNOWN INDICATION
     Dates: start: 20110114
  7. PRAVASTATIN [Concomitant]
     Indication: DYSLIPIDAEMIA
     Dates: start: 20110118

REACTIONS (11)
  - HEADACHE [None]
  - CEREBRAL ISCHAEMIA [None]
  - PANCREATITIS ACUTE [None]
  - HYPERLIPASAEMIA [None]
  - VIITH NERVE PARALYSIS [None]
  - CEREBROVASCULAR ACCIDENT [None]
  - PARAESTHESIA [None]
  - ABDOMINAL PAIN [None]
  - VERTIGO [None]
  - HYPERREFLEXIA [None]
  - DYSARTHRIA [None]
